FAERS Safety Report 23658766 (Version 5)
Quarter: 2024Q4

REPORT INFORMATION
  Report Type: Spontaneous
  Country: JP (occurrence: JP)
  Receive Date: 20240321
  Receipt Date: 20241004
  Transmission Date: 20250115
  Serious: Yes (Death, Other)
  Sender: GENMAB
  Company Number: JP-GENMAB-2024-00878

PATIENT
  Age: 9 Decade
  Sex: Male

DRUGS (53)
  1. EPKINLY [Suspect]
     Active Substance: EPCORITAMAB-BYSP
     Indication: Diffuse large B-cell lymphoma
     Dosage: 0.16 MILLIGRAM, SINGLE
     Route: 058
     Dates: start: 20240226, end: 20240226
  2. EPKINLY [Suspect]
     Active Substance: EPCORITAMAB-BYSP
     Dosage: 0.8 MILLIGRAM, SINGLE
     Route: 058
     Dates: start: 20240304, end: 20240304
  3. ISOTONIC SODIUM CHLORIDE SOLUTION [Concomitant]
     Active Substance: SODIUM CHLORIDE
     Dosage: 1850ML
     Dates: start: 20240308, end: 20240324
  4. ISOTONIC SODIUM CHLORIDE SOLUTION [Concomitant]
     Active Substance: SODIUM CHLORIDE
     Dosage: 1 A/DAY, FOR FLUSHING
     Dates: start: 20240313, end: 20240313
  5. ISOTONIC SODIUM CHLORIDE SOLUTION [Concomitant]
     Active Substance: SODIUM CHLORIDE
     Dosage: 20 A/DAY, FOR FLUSHING
     Dates: start: 20240314, end: 20240315
  6. ISOTONIC SODIUM CHLORIDE SOLUTION [Concomitant]
     Active Substance: SODIUM CHLORIDE
     Dosage: 2 BOTTLES/DAY
     Dates: start: 20240308, end: 20240308
  7. ISOTONIC SODIUM CHLORIDE SOLUTION [Concomitant]
     Active Substance: SODIUM CHLORIDE
     Dosage: 1 BOTTLE/DAY
     Dates: start: 20240309, end: 20240312
  8. ISOTONIC SODIUM CHLORIDE SOLUTION [Concomitant]
     Active Substance: SODIUM CHLORIDE
     Dosage: 2 BOTTLES/DAY
     Dates: start: 20240313, end: 20240313
  9. ISOTONIC SODIUM CHLORIDE SOLUTION [Concomitant]
     Active Substance: SODIUM CHLORIDE
     Dosage: 3 BOTTLES/DAY
     Dates: start: 20240314, end: 20240321
  10. ISOTONIC SODIUM CHLORIDE SOLUTION [Concomitant]
     Active Substance: SODIUM CHLORIDE
     Dosage: 2 BOTTLES/DAY
     Dates: start: 20240322, end: 20240323
  11. ISOTONIC SODIUM CHLORIDE SOLUTION [Concomitant]
     Active Substance: SODIUM CHLORIDE
     Dosage: 1 BOTTLE/DAY
     Dates: start: 20240324, end: 20240324
  12. URSODIOL [Concomitant]
     Active Substance: URSODIOL
     Dosage: 4200,AFTER EVERY MEAL
     Dates: start: 20240221, end: 20240305
  13. URSODIOL [Concomitant]
     Active Substance: URSODIOL
     Dosage: 6300MG,AFTER EVERY MEAL
     Dates: start: 20240306, end: 20240325
  14. OFEV [Concomitant]
     Active Substance: NINTEDANIB
     Dosage: 7200 MG, OUT-OF-HOSPITAL, AFTER BREAKFAST AND DINNER
     Dates: start: 20240220, end: 20240314
  15. EDOXABAN TOSYLATE [Concomitant]
     Active Substance: EDOXABAN TOSYLATE
     Dosage: 1140MG, AFTER BREAKFAST
     Dates: start: 20240220, end: 20240325
  16. DECADRON [Concomitant]
     Active Substance: DEXAMETHASONE
     Dosage: 144 MG, AFTER BREAKFAST
     Dates: start: 20240226, end: 20240229
  17. DECADRON [Concomitant]
     Active Substance: DEXAMETHASONE
     Dosage: 144 MG, AFTER BREAKFAST
     Dates: start: 20240304, end: 20240307
  18. DECADRON [Concomitant]
     Active Substance: DEXAMETHASONE
     Dosage: 144 MG, AFTER BREAKFAST
     Dates: start: 20240312, end: 20240314
  19. DAYVIGO [Concomitant]
     Active Substance: LEMBOREXANT
     Dosage: 42.5MG, BEFORE GOING TO BED
     Dates: start: 20240310, end: 20240325
  20. VILDAGLIPTIN [Concomitant]
     Active Substance: VILDAGLIPTIN
     Dosage: 2400 MG, AFTER BREAKFAST AND DINNER
     Dates: start: 20240220, end: 20240314
  21. EURAX [Concomitant]
     Active Substance: CROTAMITON
     Dosage: 20G,  EXTERNAL USE?FULL DOSE?
     Dates: start: 20240222, end: 20240222
  22. LEVOTHYROXINE SODIUM [Concomitant]
     Active Substance: LEVOTHYROXINE SODIUM
     Dosage: 2250UG, AFTER BREAKFAST.
     Dates: start: 20240220, end: 20240314
  23. LEVOTHYROXINE SODIUM [Concomitant]
     Active Substance: LEVOTHYROXINE SODIUM
     Dosage: 1.5
     Dates: start: 20240316, end: 20240325
  24. NAPROXEN [Concomitant]
     Active Substance: NAPROXEN
     Dosage: 10500MG,AFTER EVERY MEAL
     Dates: start: 20240221, end: 20240325
  25. LIDOCAINE\TRIBENOSIDE [Concomitant]
     Active Substance: LIDOCAINE\TRIBENOSIDE
     Dosage: 177.6 G,  EXTERNAL USE (DAILY DOSE)
     Dates: start: 20240220, end: 20240225
  26. LIDOCAINE\TRIBENOSIDE [Concomitant]
     Active Substance: LIDOCAINE\TRIBENOSIDE
     Dosage: 4.0G,  EXTERNAL USE (DAILY DOSE)
     Dates: start: 20240226, end: 20240227
  27. LIDOCAINE\TRIBENOSIDE [Concomitant]
     Active Substance: LIDOCAINE\TRIBENOSIDE
     Dosage: 2.0G,  EXTERNAL USE (DAILY DOSE)
     Dates: start: 20240228, end: 20240325
  28. BISOPROLOL [Concomitant]
     Active Substance: BISOPROLOL\BISOPROLOL FUMARATE
     Dosage: 47.5MG, AFTER BREAKFAST
     Dates: start: 20240220, end: 20240314
  29. BISOPROLOL [Concomitant]
     Active Substance: BISOPROLOL\BISOPROLOL FUMARATE
     Dosage: 47.5MG, AFTER BREAKFAST
     Dates: start: 20240316, end: 20240325
  30. LEVOTHYROXINE SODIUM [Concomitant]
     Active Substance: LEVOTHYROXINE SODIUM
     Dosage: 600UG, AFTER BREAKFAST
     Dates: start: 20240220, end: 20240314
  31. LANSOPRAZOLE [Concomitant]
     Active Substance: LANSOPRAZOLE
     Dosage: 570MG, AFTER BREAKFAST
     Dates: start: 20240220, end: 20240325
  32. LANSOPRAZOLE [Concomitant]
     Active Substance: LANSOPRAZOLE
     Dosage: 570MG, AFTER BREAKFAST
     Dates: start: 20240316, end: 20240325
  33. MAGNESIUM OXIDE [Concomitant]
     Active Substance: MAGNESIUM OXIDE
     Dosage: 34650MG, AFTER EVERY MEAL
     Dates: start: 20240221, end: 20240325
  34. ACYCLOVIR [Concomitant]
     Active Substance: ACYCLOVIR
     Dosage: 7000MG, AFTER BREAKFAST
     Dates: start: 20240221, end: 20240325
  35. SULFAMETHOXAZOLE\TRIMETHOPRIM [Concomitant]
     Active Substance: SULFAMETHOXAZOLE\TRIMETHOPRIM
     Dosage: UNK, AFTER BREAKFAST
     Dates: start: 20240220, end: 20240314
  36. SULFAMETHOXAZOLE\TRIMETHOPRIM [Concomitant]
     Active Substance: SULFAMETHOXAZOLE\TRIMETHOPRIM
     Dosage: UNK, AFTER BREAKFAST
     Dates: start: 20240316, end: 20240325
  37. FEBUXOSTAT [Concomitant]
     Active Substance: FEBUXOSTAT
     Dosage: UNK, AFTER DINNER
     Dates: start: 20240220, end: 20240314
  38. SOLU-MEDROL [Concomitant]
     Active Substance: METHYLPREDNISOLONE SODIUM SUCCINATE
     Dosage: 1.0/DAY
     Dates: start: 20240311, end: 20240311
  39. SOLU-MEDROL [Concomitant]
     Active Substance: METHYLPREDNISOLONE SODIUM SUCCINATE
     Dosage: 2.0/DAY
     Dates: start: 20240312, end: 20240318
  40. SOLU-MEDROL [Concomitant]
     Active Substance: METHYLPREDNISOLONE SODIUM SUCCINATE
     Dosage: 1.0/DAY
     Dates: start: 20240319, end: 20240324
  41. SOLU-MEDROL [Concomitant]
     Active Substance: METHYLPREDNISOLONE SODIUM SUCCINATE
     Dosage: UNK
  42. DENOSINE [ADENOSINE] [Concomitant]
     Dosage: 4750MG?250/DAY
     Dates: start: 20240313, end: 20240313
  43. DENOSINE [ADENOSINE] [Concomitant]
     Dosage: 500/DAY
     Dates: start: 20240314, end: 20240321
  44. DENOSINE [ADENOSINE] [Concomitant]
     Dosage: 250/DAY
     Dates: start: 20240323, end: 20240324
  45. SOLDEM 3A [Concomitant]
     Active Substance: CARBOHYDRATES\POTASSIUM CHLORIDE\SODIUM CHLORIDE\SODIUM LACTATE
     Dosage: 7000ML 1.0/DAY
     Dates: start: 20240220, end: 20240324
  46. CYANOCOBALAMIN\PYRIDOXINE HYDROCHLORIDE\THIAMINE [Concomitant]
     Active Substance: CYANOCOBALAMIN\PYRIDOXINE HYDROCHLORIDE\THIAMINE
     Dosage: UNK
     Route: 042
     Dates: start: 20240220, end: 20240220
  47. LASIX [Concomitant]
     Active Substance: FUROSEMIDE
     Dosage: 0.5
     Dates: start: 20240308, end: 20240308
  48. LASIX [Concomitant]
     Active Substance: FUROSEMIDE
     Dosage: 1.0
     Dates: start: 20240309, end: 20240318
  49. CEFTRIAXONE SODIUM [Concomitant]
     Active Substance: CEFTRIAXONE SODIUM
     Dosage: 8G
     Dates: start: 20240308, end: 20240311
  50. HUMULIN N [Concomitant]
     Active Substance: INSULIN HUMAN
     Dosage: 4.0
     Dates: start: 20240310, end: 20240311
  51. WATER FOR INJECTION [Concomitant]
     Active Substance: WATER
     Dosage: 380ML ,1.0/DAY
     Dates: start: 20240313, end: 20240313
  52. WATER FOR INJECTION [Concomitant]
     Active Substance: WATER
     Dosage: 2.0/DAY
     Dates: start: 20240314, end: 20240322
  53. WATER FOR INJECTION [Concomitant]
     Active Substance: WATER
     Dosage: 1.0/DAY
     Dates: start: 20240322, end: 20240323

REACTIONS (4)
  - Interstitial lung disease [Fatal]
  - Pneumonia cytomegaloviral [Unknown]
  - Diffuse large B-cell lymphoma [Fatal]
  - Fungal test positive [Unknown]

NARRATIVE: CASE EVENT DATE: 20240101
